FAERS Safety Report 8254885-1 (Version None)
Quarter: 2012Q2

REPORT INFORMATION
  Report Type: 
  Country: None (occurrence: None)
  Receive Date: 20120403
  Receipt Date: 20120322
  Transmission Date: 20120825
  Serious: No
  Sender: FDA-Public Use
  Company Number: US-PFIZER INC-2012075192

PATIENT
  Sex: Female

DRUGS (1)
  1. XALATAN [Suspect]
     Indication: GLAUCOMA
     Dosage: UNK
     Dates: start: 20120201, end: 20120301

REACTIONS (4)
  - EYELID DISORDER [None]
  - EYELID OEDEMA [None]
  - EYELID EXFOLIATION [None]
  - ERYTHEMA OF EYELID [None]
